FAERS Safety Report 17336565 (Version 1)
Quarter: 2020Q1

REPORT INFORMATION
  Report Type: Report from Study
  Country: CA (occurrence: CA)
  Receive Date: 20200128
  Receipt Date: 20200128
  Transmission Date: 20200409
  Serious: Yes (Other)
  Sender: FDA-Public Use
  Company Number: CA-JNJFOC-20200126253

PATIENT
  Age: 53 Year
  Sex: Female
  Weight: 64 kg

DRUGS (1)
  1. STELARA [Suspect]
     Active Substance: USTEKINUMAB
     Indication: CROHN^S DISEASE
     Route: 042

REACTIONS (6)
  - Weight decreased [Unknown]
  - Diarrhoea [Unknown]
  - Head injury [Unknown]
  - Fall [Unknown]
  - Eye contusion [Unknown]
  - Pneumonia [Unknown]

NARRATIVE: CASE EVENT DATE: 201912
